FAERS Safety Report 4909722-7 (Version None)
Quarter: 2006Q1

REPORT INFORMATION
  Report Type: 
  Country: None (occurrence: None)
  Receive Date: 20060209
  Receipt Date: 20060127
  Transmission Date: 20060701
  Serious: Yes (Other)
  Sender: FDA-Public Use
  Company Number: 2006013967

PATIENT
  Age: 69 Year
  Sex: Female
  Weight: 57.1532 kg

DRUGS (2)
  1. CLINDAMYCIN PHOSPHATE [Suspect]
     Indication: PNEUMONITIS
     Dosage: 1800 MG (600 MG, 3 IN 1 D), INTRAVENOUS
     Route: 042
     Dates: start: 20060126
  2. ROCEPHIN [Concomitant]

REACTIONS (4)
  - BLISTER [None]
  - ERYTHEMA [None]
  - INJECTION SITE EXTRAVASATION [None]
  - SKIN INFLAMMATION [None]
